FAERS Safety Report 12658344 (Version 7)
Quarter: 2019Q2

REPORT INFORMATION
  Report Type: Report from Study
  Country: US (occurrence: US)
  Receive Date: 20160817
  Receipt Date: 20190405
  Transmission Date: 20190711
  Serious: Yes (Other)
  Sender: FDA-Public Use
  Company Number: US-BRISTOL-MYERS SQUIBB COMPANY-BMS-2016-065599

PATIENT
  Sex: Male

DRUGS (2)
  1. DASATINIB. [Suspect]
     Active Substance: DASATINIB
     Indication: CHRONIC MYELOID LEUKAEMIA
     Dosage: 100 MG, QD
     Route: 048
     Dates: start: 20160624
  2. DASATINIB. [Suspect]
     Active Substance: DASATINIB
     Indication: PRODUCT USED FOR UNKNOWN INDICATION
     Dosage: 20 MILLIGRAM 2 TABLET BY MOUTH DAILY
     Route: 048
     Dates: start: 201606

REACTIONS (18)
  - Deafness [Not Recovered/Not Resolved]
  - Otorrhoea [Not Recovered/Not Resolved]
  - Rash [Not Recovered/Not Resolved]
  - Bone pain [Not Recovered/Not Resolved]
  - Migraine [Not Recovered/Not Resolved]
  - Excessive cerumen production [Not Recovered/Not Resolved]
  - Adverse drug reaction [Unknown]
  - Vomiting [Not Recovered/Not Resolved]
  - Dyspnoea exertional [Not Recovered/Not Resolved]
  - Headache [Not Recovered/Not Resolved]
  - Myalgia [Not Recovered/Not Resolved]
  - Ear swelling [Not Recovered/Not Resolved]
  - Product dose omission [Unknown]
  - Fatigue [Not Recovered/Not Resolved]
  - Platelet count decreased [Not Recovered/Not Resolved]
  - Diarrhoea [Not Recovered/Not Resolved]
  - Nausea [Not Recovered/Not Resolved]
  - Arthralgia [Not Recovered/Not Resolved]
